FAERS Safety Report 12064802 (Version 1)
Quarter: 2016Q1

REPORT INFORMATION
  Report Type: Report from Study
  Country: CH (occurrence: CH)
  Receive Date: 20160210
  Receipt Date: 20160210
  Transmission Date: 20160526
  Serious: Yes (Other)
  Sender: FDA-Public Use
  Company Number: CH-ABBVIE-16P-151-1554891-00

PATIENT
  Sex: Male

DRUGS (2)
  1. DUODOPA [Suspect]
     Active Substance: CARBIDOPA\LEVODOPA
     Indication: PARKINSON^S DISEASE
     Dosage: MD: 12ML,CD: 2.3ML/H, ED: 2.1ML
     Route: 050
     Dates: start: 20130702
  2. BROMAZEPAMUM [Concomitant]
     Indication: PRODUCT USED FOR UNKNOWN INDICATION

REACTIONS (4)
  - Neuropathy peripheral [Unknown]
  - Weight decreased [Unknown]
  - Dysaesthesia [Unknown]
  - Gait disturbance [Unknown]
